FAERS Safety Report 7572551-2 (Version None)
Quarter: 2011Q2

REPORT INFORMATION
  Report Type: 
  Country: None (occurrence: None)
  Receive Date: 20110627
  Receipt Date: 20110616
  Transmission Date: 20111010
  Serious: Yes (Hospitalization)
  Sender: FDA-Public Use
  Company Number: US-BIOGENIDEC-2011BI022994

PATIENT
  Age: 57 Year
  Sex: Female

DRUGS (5)
  1. AVONEX [Suspect]
     Indication: MULTIPLE SCLEROSIS
     Route: 030
  2. AVONEX [Suspect]
     Route: 030
  3. AVONEX [Suspect]
     Route: 030
     Dates: start: 20080317, end: 20081201
  4. AVONEX [Suspect]
     Route: 030
     Dates: start: 19970701
  5. AVONEX [Suspect]
     Route: 030
     Dates: start: 20090514

REACTIONS (2)
  - BACK PAIN [None]
  - DEVICE EXTRUSION [None]
